FAERS Safety Report 10762573 (Version 6)
Quarter: 2016Q2

REPORT INFORMATION
  Report Type: Report from Study
  Country: IT (occurrence: IT)
  Receive Date: 20150204
  Receipt Date: 20160616
  Transmission Date: 20160815
  Serious: Yes (Hospitalization, Other)
  Sender: FDA-Public Use
  Company Number: PHHY2015IT012575

PATIENT
  Age: 71 Year
  Sex: Male
  Weight: 87 kg

DRUGS (2)
  1. TASIGNA [Suspect]
     Active Substance: NILOTINIB
     Indication: CHRONIC MYELOID LEUKAEMIA
     Dosage: 300 MG, BID
     Route: 048
     Dates: start: 20110131
  2. ENALAPRIL PENSA [Concomitant]
     Indication: HYPERTENSION
     Dosage: 20 MG, QD
     Route: 065
     Dates: start: 2007

REACTIONS (8)
  - Skin lesion [Unknown]
  - Arterial occlusive disease [Unknown]
  - Gangrene [Unknown]
  - Localised infection [Unknown]
  - Corynebacterium infection [Unknown]
  - Hyperuricaemia [Unknown]
  - Bacteroides infection [Unknown]
  - Ischaemia [Recovered/Resolved]

NARRATIVE: CASE EVENT DATE: 20141112
